FAERS Safety Report 6766670-8 (Version None)
Quarter: 2010Q2

REPORT INFORMATION
  Report Type: 
  Country: None (occurrence: None)
  Receive Date: 20100609
  Receipt Date: 20100531
  Transmission Date: 20101027
  Serious: Yes (Hospitalization)
  Sender: FDA-Public Use
  Company Number: JHP201000181

PATIENT
  Age: 21 Year
  Sex: Female

DRUGS (9)
  1. DANTRIUM [Suspect]
     Indication: PARAPLEGIA
     Dosage: 5 MG, TID, ORAL
     Route: 048
     Dates: start: 20080501
  2. PRAXINOR (CAFEDRINE HYDROCHLORIDE, THEODRENALINE HYDROCHLORIDE) TABLET [Suspect]
     Dosage: STARTED BEFORE PREGNANCY - 3 TABLETS/DAY, ORAL
     Route: 048
  3. BACLOFEN [Suspect]
     Dosage: STARTED BEFORE PREGNANCY - 20 MG/ DAY, ORAL
     Route: 048
  4. PERISTALTINE (RHAMNUS PURSHIANA EXTRACT) [Suspect]
     Dosage: STARTED BEORE PREGNANCY - 1 DF, DAILY, ORAL; 1 DF DAILY EVERY TWO DAYS, ORAL
     Route: 048
  5. HEPTAMINOL (HEPTAMINOL) [Suspect]
     Dosage: 187.8 MG, QID, ORAL
     Route: 048
  6. DITROPAN [Suspect]
     Dosage: 15 MG, DAILY, ORAL
     Route: 048
  7. VACCINIUM MACROCARPON (VACCINIUM MACROCARPON) [Suspect]
     Dosage: 1000 MG, DAILY, ORAL
     Route: 048
  8. LEXOMIL (BROMAZEPAM) [Suspect]
     Dosage: STARTED EFORE PREGNANCY - 0.25 DF DAILY, ORAL
     Route: 048
  9. VENLAFAXINE HCL [Concomitant]

REACTIONS (2)
  - ABORTION INDUCED [None]
  - DRUG EXPOSURE DURING PREGNANCY [None]
